FAERS Safety Report 15580969 (Version 8)
Quarter: 2019Q2

REPORT INFORMATION
  Report Type: Report from Study
  Country: BR (occurrence: BR)
  Receive Date: 20181102
  Receipt Date: 20190517
  Transmission Date: 20190711
  Serious: Yes (Life-Threatening, Hospitalization, Other)
  Sender: FDA-Public Use
  Company Number: PHHY2018BR145324

PATIENT
  Age: 67 Year
  Sex: Female
  Weight: 62 kg

DRUGS (7)
  1. OXIMAX [Concomitant]
     Active Substance: MOMETASONE FUROATE
     Indication: PRODUCT USED FOR UNKNOWN INDICATION
     Dosage: UNK UNK, QD
     Route: 065
  2. FORASEQ [Suspect]
     Active Substance: BUDESONIDE\FORMOTEROL FUMARATE
     Indication: ASTHMA
     Route: 065
  3. RANITIDINE. [Suspect]
     Active Substance: RANITIDINE
     Indication: PRODUCT USED FOR UNKNOWN INDICATION
     Route: 065
  4. FLUIR [Concomitant]
     Active Substance: FORMOTEROL FUMARATE
     Indication: PRODUCT USED FOR UNKNOWN INDICATION
     Dosage: UNK UNK, QD
     Route: 065
  5. XOLAIR [Suspect]
     Active Substance: OMALIZUMAB
     Indication: ASTHMA
     Dosage: 300 MG, QMO
     Route: 058
     Dates: start: 20181121
  6. XOLAIR [Suspect]
     Active Substance: OMALIZUMAB
     Dosage: UNK
     Route: 058
     Dates: start: 20190227
  7. XOLAIR [Suspect]
     Active Substance: OMALIZUMAB
     Dosage: UNK
     Route: 065
     Dates: start: 20190417

REACTIONS (38)
  - Headache [Recovered/Resolved]
  - Eating disorder [Recovering/Resolving]
  - Cardio-respiratory arrest [Recovering/Resolving]
  - Abdominal discomfort [Recovering/Resolving]
  - Rhinorrhoea [Recovered/Resolved]
  - Weight increased [Not Recovered/Not Resolved]
  - Peripheral swelling [Not Recovered/Not Resolved]
  - Nausea [Recovering/Resolving]
  - Hypersensitivity [Unknown]
  - Pain in extremity [Unknown]
  - Keratoconus [Unknown]
  - Bone disorder [Not Recovered/Not Resolved]
  - Nasopharyngitis [Unknown]
  - Dyspnoea [Recovering/Resolving]
  - Pain [Recovered/Resolved]
  - Osteoporosis [Not Recovered/Not Resolved]
  - Bone pain [Not Recovered/Not Resolved]
  - Headache [Recovered/Resolved]
  - Pulmonary pain [Recovered/Resolved]
  - Application site pain [Recovered/Resolved]
  - Adverse drug reaction [Recovering/Resolving]
  - Diarrhoea [Unknown]
  - Body height decreased [Not Recovered/Not Resolved]
  - Visual impairment [Unknown]
  - Malaise [Unknown]
  - Blood immunoglobulin E increased [Not Recovered/Not Resolved]
  - Oropharyngeal discomfort [Unknown]
  - Drug ineffective [Not Recovered/Not Resolved]
  - Cataract [Recovering/Resolving]
  - Feeling cold [Recovered/Resolved]
  - Fatigue [Not Recovered/Not Resolved]
  - Nausea [Recovered/Resolved]
  - Dysphonia [Unknown]
  - Accident [Unknown]
  - Pyrexia [Recovered/Resolved]
  - Retching [Unknown]
  - Blister [Unknown]
  - Vomiting [Unknown]

NARRATIVE: CASE EVENT DATE: 201807
